FAERS Safety Report 19912815 (Version 1)
Quarter: 2021Q4

REPORT INFORMATION
  Report Type: Spontaneous
  Country: US (occurrence: US)
  Receive Date: 20211004
  Receipt Date: 20211004
  Transmission Date: 20220304
  Serious: No
  Sender: FDA-Public Use
  Company Number: US-PFIZER INC-2021259722

PATIENT
  Age: 61 Year
  Sex: Male
  Weight: 82.1 kg

DRUGS (1)
  1. VIAGRA [Suspect]
     Active Substance: SILDENAFIL CITRATE
     Indication: Erectile dysfunction
     Dosage: 1 DF (ONLY TOOK 1 PILL)
     Route: 048

REACTIONS (4)
  - Counterfeit product administered [Unknown]
  - Vomiting [Unknown]
  - Illness [Unknown]
  - Nausea [Unknown]
